FAERS Safety Report 5281166-0 (Version None)
Quarter: 2007Q1

REPORT INFORMATION
  Report Type: 
  Country: None (occurrence: None)
  Receive Date: 20070329
  Receipt Date: 20070327
  Transmission Date: 20070707
  Serious: Yes (Other)
  Sender: FDA-Public Use
  Company Number: US-MERCK-0702USA01405

PATIENT
  Age: 65 Year
  Sex: Female

DRUGS (1)
  1. COSOPT [Suspect]
     Indication: GLAUCOMA
     Route: 047
     Dates: start: 19980101

REACTIONS (6)
  - ANGIOPATHY [None]
  - BURNING SENSATION [None]
  - CARDIOVASCULAR INSUFFICIENCY [None]
  - PAIN [None]
  - PERIPHERAL COLDNESS [None]
  - PERIPHERAL NERVE INJURY [None]
